FAERS Safety Report 17010047 (Version 1)
Quarter: 2019Q4

REPORT INFORMATION
  Report Type: Spontaneous
  Country: US (occurrence: US)
  Receive Date: 20191107
  Receipt Date: 20191107
  Transmission Date: 20200122
  Serious: Yes (Hospitalization)
  Sender: FDA-Public Use
  Company Number: None

PATIENT
  Age: 58 Year
  Sex: Male

DRUGS (9)
  1. ALLOPURINOL. [Concomitant]
     Active Substance: ALLOPURINOL
  2. DIGOXIN. [Concomitant]
     Active Substance: DIGOXIN
  3. WARFARIN [Concomitant]
     Active Substance: WARFARIN
  4. GABAPENTIN. [Concomitant]
     Active Substance: GABAPENTIN
  5. COLCHICINE. [Concomitant]
     Active Substance: COLCHICINE
  6. SUMATRIPTAN. [Concomitant]
     Active Substance: SUMATRIPTAN
  7. TRAMADOL. [Concomitant]
     Active Substance: TRAMADOL
  8. SILDENAFIL. [Suspect]
     Active Substance: SILDENAFIL
     Indication: PULMONARY HYPERTENSION
     Route: 048
     Dates: start: 20150918
  9. FUROSEMIDE. [Concomitant]
     Active Substance: FUROSEMIDE

REACTIONS (1)
  - Herpes zoster [None]

NARRATIVE: CASE EVENT DATE: 20191106
